FAERS Safety Report 7727492-4 (Version None)
Quarter: 2011Q3

REPORT INFORMATION
  Report Type: 
  Country: None (occurrence: None)
  Receive Date: 20110902
  Receipt Date: 20110827
  Transmission Date: 20111222
  Serious: Yes (Hospitalization)
  Sender: FDA-Public Use
  Company Number: FR-PFIZER INC-2005154167

PATIENT
  Age: 38 Year
  Sex: Female

DRUGS (8)
  1. BACAMPICILLIN HCL [Suspect]
     Route: 048
     Dates: start: 20050312, end: 20050314
  2. GLIMEPIRIDE [Concomitant]
     Route: 065
  3. INDAPAMIDE [Concomitant]
     Route: 065
  4. METFORMIN HCL [Concomitant]
     Route: 065
  5. AMLODIPINE [Concomitant]
     Route: 065
  6. CLOXACILLIN SODIUM [Suspect]
     Indication: OROPHARYNGEAL PAIN
     Route: 048
     Dates: start: 20050314, end: 20050318
  7. BACITRACIN [Suspect]
     Indication: OROPHARYNGEAL PAIN
     Route: 048
     Dates: start: 20050312, end: 20050318
  8. RAMIPRIL [Concomitant]
     Route: 065

REACTIONS (2)
  - VASCULAR PURPURA [None]
  - LEUKOCYTOCLASTIC VASCULITIS [None]
